FAERS Safety Report 6248515-8 (Version None)
Quarter: 2009Q2

REPORT INFORMATION
  Report Type: 
  Country: None (occurrence: None)
  Receive Date: 20090629
  Receipt Date: 20090624
  Transmission Date: 20091009
  Serious: Yes (Life-Threatening, Hospitalization)
  Sender: FDA-Public Use
  Company Number: AU-ASTRAZENECA-2009SE03209

PATIENT
  Age: 30155 Day
  Sex: Male

DRUGS (5)
  1. NEXIUM [Suspect]
     Route: 048
     Dates: start: 20061220
  2. SPIRONOLACTONE [Suspect]
     Route: 048
     Dates: start: 20080418, end: 20080602
  3. RAMIPRIL [Concomitant]
     Route: 048
     Dates: start: 20060101
  4. FRUSEMIDE [Concomitant]
     Route: 048
     Dates: start: 20080418
  5. METFORMIN HYDROCHLORIDE [Concomitant]
     Route: 048
     Dates: start: 20061220, end: 20080102

REACTIONS (7)
  - ALTERED STATE OF CONSCIOUSNESS [None]
  - BRADYCARDIA [None]
  - DYSPNOEA [None]
  - FALL [None]
  - FEELING ABNORMAL [None]
  - HYPOTENSION [None]
  - MALAISE [None]
